FAERS Safety Report 9918929 (Version 1)
Quarter: 2014Q1

REPORT INFORMATION
  Report Type: Spontaneous
  Country: US (occurrence: US)
  Receive Date: 20140224
  Receipt Date: 20140224
  Transmission Date: 20141002
  Serious: No
  Sender: FDA-Public Use
  Company Number: US-PFIZER INC-2014048060

PATIENT
  Sex: Female

DRUGS (2)
  1. ZOLOFT [Suspect]
     Dosage: 25 MG,1 AND 1/2 TABLET DAILY
  2. CELEXA [Suspect]
     Dosage: 10 MG, UNK

REACTIONS (2)
  - Anxiety [Unknown]
  - Panic disorder [Unknown]
